FAERS Safety Report 9580241 (Version 1)
Quarter: 2013Q3

REPORT INFORMATION
  Report Type: Spontaneous
  Country: CA (occurrence: None)
  Receive Date: 20130916
  Receipt Date: 20130916
  Transmission Date: 20140515
  Serious: Yes (Other)
  Sender: FDA-Public Use
  Company Number: JPI-P-024964

PATIENT
  Age: 25 Year
  Sex: Female

DRUGS (4)
  1. XYREM (500 MILLIGRAM/MILLILITERS, SOLUTION) (SODIUM OXYBATE) [Suspect]
     Indication: CATAPLEXY
     Dosage: 4.5 GM  (2.25 GM,  2 IN 1 D), ORAL
     Route: 048
     Dates: start: 20111125, end: 20111216
  2. MODAFINIL [Concomitant]
  3. VITAMIN D [Concomitant]
  4. FOLIC ACID [Concomitant]

REACTIONS (5)
  - Tachycardia [None]
  - Tremor [None]
  - Acne [None]
  - Alopecia [None]
  - Syncope [None]
